FAERS Safety Report 18430279 (Version 4)
Quarter: 2020Q4

REPORT INFORMATION
  Report Type: Report from Study
  Country: None (occurrence: GR)
  Receive Date: 20201026
  Receipt Date: 20201109
  Transmission Date: 20210114
  Serious: Yes (Hospitalization)
  Sender: FDA-Public Use
  Company Number: GR-ABBVIE-20K-066-3624170-00

PATIENT
  Age: 69 Year
  Sex: Male
  Weight: 60 kg

DRUGS (2)
  1. DUODOPA [Suspect]
     Active Substance: CARBIDOPA\LEVODOPA
     Indication: PARKINSON^S DISEASE
     Dosage: MORNING DOSE: 11.5 ML; CONTINUOUS RATE: 3.2 ML/H; EXTRA DOSE:1.0 ML
     Route: 050
     Dates: start: 20200629
  2. DUODOPA [Suspect]
     Active Substance: CARBIDOPA\LEVODOPA

REACTIONS (4)
  - Mobility decreased [Recovering/Resolving]
  - Fall [Recovered/Resolved]
  - Femur fracture [Recovering/Resolving]
  - Bedridden [Recovered/Resolved]

NARRATIVE: CASE EVENT DATE: 20201023
